FAERS Safety Report 13990754 (Version 2)
Quarter: 2018Q1

REPORT INFORMATION
  Report Type: Report from Study
  Country: BR (occurrence: BR)
  Receive Date: 20170920
  Receipt Date: 20180116
  Transmission Date: 20180508
  Serious: Yes (Other)
  Sender: FDA-Public Use
  Company Number: BR-JNJFOC-20170116031

PATIENT
  Age: 67 Year
  Sex: Female
  Weight: 73 kg

DRUGS (5)
  1. LIPLESS [Concomitant]
     Active Substance: CIPROFIBRATE
     Route: 065
  2. SIMPONI [Suspect]
     Active Substance: GOLIMUMAB
     Indication: RHEUMATOID ARTHRITIS
     Route: 058
     Dates: start: 20140802
  3. CONCOR [Concomitant]
     Active Substance: BISOPROLOL FUMARATE
  4. ARAVA [Concomitant]
     Active Substance: LEFLUNOMIDE
     Route: 065
  5. LIPITOR [Concomitant]
     Active Substance: ATORVASTATIN CALCIUM

REACTIONS (9)
  - Platelet count decreased [Not Recovered/Not Resolved]
  - Renal impairment [Unknown]
  - Eye haemorrhage [Unknown]
  - Weight increased [Unknown]
  - Cataract [Unknown]
  - Eye irritation [Unknown]
  - Glaucoma [Unknown]
  - Retinal vascular thrombosis [Unknown]
  - Viral infection [Unknown]

NARRATIVE: CASE EVENT DATE: 201612
